FAERS Safety Report 5588736-0 (Version None)
Quarter: 2008Q1

REPORT INFORMATION
  Report Type: 
  Country: None (occurrence: None)
  Receive Date: 20080111
  Receipt Date: 20080103
  Transmission Date: 20080703
  Serious: Yes (Hospitalization)
  Sender: FDA-Public Use
  Company Number: B0360575A

PATIENT
  Sex: Female

DRUGS (3)
  1. PAROXETINE HYDROCHLORIDE [Suspect]
     Indication: DEPRESSION
     Route: 065
     Dates: start: 19980227
  2. TRAZODONE HCL [Concomitant]
     Dosage: 5MG TWICE PER DAY
     Dates: start: 20010608
  3. DIAZEPAM [Concomitant]
     Dosage: 50MG AT NIGHT

REACTIONS (20)
  - AGGRESSION [None]
  - AMNESIA [None]
  - ANXIETY [None]
  - BALANCE DISORDER [None]
  - DISTURBANCE IN ATTENTION [None]
  - FATIGUE [None]
  - HEADACHE [None]
  - INCREASED APPETITE [None]
  - INSOMNIA [None]
  - LETHARGY [None]
  - LOSS OF LIBIDO [None]
  - MOOD SWINGS [None]
  - NAUSEA [None]
  - PANIC REACTION [None]
  - SENSORY DISTURBANCE [None]
  - SUICIDAL IDEATION [None]
  - TEARFULNESS [None]
  - VOMITING [None]
  - WEIGHT INCREASED [None]
  - WITHDRAWAL SYNDROME [None]
